FAERS Safety Report 21397595 (Version 1)
Quarter: 2022Q3

REPORT INFORMATION
  Report Type: Spontaneous
  Country: US (occurrence: None)
  Receive Date: 20220929
  Receipt Date: 20220929
  Transmission Date: 20221027
  Serious: Yes (Hospitalization)
  Sender: FDA-Public Use
  Company Number: None

PATIENT
  Sex: Male

DRUGS (11)
  1. DROXIDOPA [Suspect]
     Active Substance: DROXIDOPA
     Indication: Parkinson^s disease
     Dosage: FREQUENCY : 3 TIMES A DAY;?
     Route: 048
     Dates: start: 20220831
  2. ASPIRIN LOW TAB [Concomitant]
  3. CHOLECALCIF POW [Concomitant]
  4. GABAPENTIN [Concomitant]
     Active Substance: GABAPENTIN
  5. GOCOVRI CAP [Concomitant]
  6. HYDROXYZINE POW PAMOATE [Concomitant]
  7. INBRIJA CAP [Concomitant]
  8. MELATONIN TAB [Concomitant]
  9. RYTARY CAP [Concomitant]
  10. TYLENOL TAB [Concomitant]
  11. VITAMIN C TAB [Concomitant]

REACTIONS (1)
  - Hospitalisation [None]
